FAERS Safety Report 4676503-1 (Version None)
Quarter: 2005Q2

REPORT INFORMATION
  Report Type: 
  Country: None (occurrence: None)
  Receive Date: 20050527
  Receipt Date: 20050516
  Transmission Date: 20051028
  Serious: Yes (Hospitalization)
  Sender: FDA-Public Use
  Company Number: US-JNJFOC-20050504519

PATIENT
  Sex: Female
  Weight: 54.43 kg

DRUGS (4)
  1. DURAGESIC-100 [Suspect]
     Route: 062
     Dates: start: 20041101
  2. PERCOCET [Concomitant]
     Dates: start: 20031201
  3. PERCOCET [Concomitant]
     Indication: PAIN
     Dosage: 10/325 MG, 2 - 3 PILLS PER DAY
     Dates: start: 20031201
  4. ENBREL [Concomitant]
     Indication: RHEUMATOID ARTHRITIS
     Route: 030

REACTIONS (1)
  - PNEUMONIA [None]
